FAERS Safety Report 5307773-4 (Version None)
Quarter: 2007Q2

REPORT INFORMATION
  Report Type: 
  Country: None (occurrence: None)
  Receive Date: 20070418
  Receipt Date: 20070404
  Transmission Date: 20071010
  Serious: Yes (Hospitalization, Other)
  Sender: FDA-Public Use
  Company Number: 2007S1002995

PATIENT
  Sex: Male

DRUGS (3)
  1. LISINOPRIL AND HYDROCHLOROTHIAZIDE [Suspect]
     Indication: HYPERTENSION
     Dosage: 20 MG, DAILY, ORAL
     Route: 048
  2. METFORMIN (CON.) [Concomitant]
  3. ATORVASTATIN (CON.) [Concomitant]

REACTIONS (4)
  - BLOOD PRESSURE INCREASED [None]
  - CORONARY ARTERY BYPASS [None]
  - DRUG INEFFECTIVE [None]
  - FEELING ABNORMAL [None]
